FAERS Safety Report 6133922-4 (Version None)
Quarter: 2009Q1

REPORT INFORMATION
  Report Type: 
  Country: None (occurrence: None)
  Receive Date: 20090326
  Receipt Date: 20090316
  Transmission Date: 20090719
  Serious: Yes (Other)
  Sender: FDA-Public Use
  Company Number: US-ELI_LILLY_AND_COMPANY-US200903004921

PATIENT
  Sex: Female

DRUGS (2)
  1. CYMBALTA [Suspect]
     Indication: MAJOR DEPRESSION
     Dosage: 30 MG, UNK
     Dates: start: 20071001, end: 20071001
  2. ST. JOHN'S WORT [Concomitant]

REACTIONS (9)
  - ANXIETY [None]
  - BLOOD PRESSURE INCREASED [None]
  - CHEST PAIN [None]
  - DIZZINESS [None]
  - DRUG WITHDRAWAL SYNDROME [None]
  - LOSS OF CONSCIOUSNESS [None]
  - PALPITATIONS [None]
  - PANIC ATTACK [None]
  - VISION BLURRED [None]
